FAERS Safety Report 5474267-5 (Version None)
Quarter: 2007Q4

REPORT INFORMATION
  Report Type: 
  Country: None (occurrence: None)
  Receive Date: 20071002
  Receipt Date: 20070629
  Transmission Date: 20080405
  Serious: No
  Sender: FDA-Public Use
  Company Number: US-ASTRAZENECA-2007UW15530

PATIENT
  Age: 73 Year
  Sex: Female
  Weight: 44.5 kg

DRUGS (7)
  1. ARIMIDEX [Suspect]
     Indication: BREAST CANCER FEMALE
     Route: 048
     Dates: start: 20050101
  2. PREDNISONE [Concomitant]
     Dates: start: 19860101
  3. DARVOCET [Concomitant]
  4. LONOX [Concomitant]
  5. BARBADONNA [Concomitant]
  6. CHROMIUM [Concomitant]
  7. PICOLONATE [Concomitant]

REACTIONS (4)
  - ARTHRALGIA [None]
  - ASTHENIA [None]
  - BURNING SENSATION [None]
  - OEDEMA PERIPHERAL [None]
